FAERS Safety Report 20379731 (Version 3)
Quarter: 2022Q1

REPORT INFORMATION
  Report Type: Spontaneous
  Country: JP (occurrence: JP)
  Receive Date: 20220126
  Receipt Date: 20220323
  Transmission Date: 20220423
  Serious: Yes (Hospitalization)
  Sender: FDA-Public Use
  Company Number: JP-Eisai-202110886_LEN-HCC_P_1

PATIENT
  Age: 88 Year
  Sex: Male

DRUGS (4)
  1. LENVIMA [Suspect]
     Active Substance: LENVATINIB
     Indication: Hepatocellular carcinoma
     Route: 048
     Dates: start: 20200707, end: 20200726
  2. LENVIMA [Suspect]
     Active Substance: LENVATINIB
     Route: 048
     Dates: start: 20200803, end: 20210103
  3. LENVIMA [Suspect]
     Active Substance: LENVATINIB
     Dosage: MONDAY TO FRIDAY ON A 5 DAYS ON/2 DAYS OFF SCHEDULE.
     Route: 048
     Dates: start: 20210104, end: 20211212
  4. LENVIMA [Suspect]
     Active Substance: LENVATINIB
     Route: 048
     Dates: start: 20211213, end: 20220122

REACTIONS (1)
  - Pancreatitis acute [Not Recovered/Not Resolved]

NARRATIVE: CASE EVENT DATE: 20210730
